FAERS Safety Report 18101304 (Version 6)
Quarter: 2021Q1

REPORT INFORMATION
  Report Type: Spontaneous
  Country: US (occurrence: US)
  Receive Date: 20200801
  Receipt Date: 20210209
  Transmission Date: 20210419
  Serious: Yes (Death, Hospitalization, Other)
  Sender: FDA-Public Use
  Company Number: US-SA-2020SA197175

PATIENT
  Age: 45 Year
  Sex: Male

DRUGS (2)
  1. CAPRELSA [Suspect]
     Active Substance: VANDETANIB
     Indication: THYROID CANCER
     Dosage: 100 MG, QD
     Route: 048
     Dates: start: 20200716
  2. CAPRELSA [Suspect]
     Active Substance: VANDETANIB
     Dosage: 100 UNK
     Route: 048
     Dates: start: 20200812, end: 20201227

REACTIONS (3)
  - Spinal compression fracture [Unknown]
  - Ligament sprain [Unknown]
  - Death [Fatal]
